FAERS Safety Report 8115571-1 (Version None)
Quarter: 2012Q1

REPORT INFORMATION
  Report Type: 
  Country: None (occurrence: None)
  Receive Date: 20120206
  Receipt Date: 20120130
  Transmission Date: 20120608
  Serious: Yes (Death)
  Sender: FDA-Public Use
  Company Number: US-PFIZER INC-2012030159

PATIENT
  Sex: Male

DRUGS (3)
  1. SUTENT [Suspect]
  2. GEMCITABINE HYDROCHLORIDE [Suspect]
  3. ADRIAMYCIN PFS [Suspect]

REACTIONS (1)
  - ACUTE HEPATIC FAILURE [None]
